FAERS Safety Report 8838965 (Version 1)
Quarter: 2012Q4

REPORT INFORMATION
  Report Type: Spontaneous
  Country: US (occurrence: None)
  Receive Date: 20121011
  Receipt Date: 20121011
  Transmission Date: 20130627
  Serious: No
  Sender: FDA-Public Use
  Company Number: None

PATIENT
  Age: 49 Year
  Sex: Female

DRUGS (3)
  1. AMPYRA [Suspect]
     Indication: MULTIPLE SCLEROSIS
     Dosage: 10mg q12h orally
     Route: 048
     Dates: start: 201108, end: 201203
  2. CLONAZEPAM [Concomitant]
  3. FUROSEMIDE [Concomitant]

REACTIONS (1)
  - Convulsion [None]
